FAERS Safety Report 4937473-1 (Version None)
Quarter: 2006Q1

REPORT INFORMATION
  Report Type: 
  Country: None (occurrence: None)
  Receive Date: 20060302
  Receipt Date: 20060209
  Transmission Date: 20060701
  Serious: Yes (Other)
  Sender: FDA-Public Use
  Company Number: JP200512003968

PATIENT
  Age: 78 Year
  Sex: Female
  Weight: 45 kg

DRUGS (5)
  1. EVISTA [Suspect]
     Indication: OSTEOPOROSIS POSTMENOPAUSAL
     Dosage: 60 MG, DAILY (1/D), ORAL
     Route: 048
     Dates: start: 20050905, end: 20051207
  2. LANSOPRAZOLE (LANSOPRAZOLE) CAPSULE [Concomitant]
  3. NORVASC /GRC/ (AMLODIPINE) TABLET [Concomitant]
  4. NATRIX (INDAPAMIDE) TABLET [Concomitant]
  5. SIMVASTATIN (SIMVASTATIN) TABLET [Concomitant]

REACTIONS (3)
  - ECZEMA [None]
  - INSOMNIA [None]
  - URTICARIA GENERALISED [None]
